FAERS Safety Report 8563847-6 (Version None)
Quarter: 2012Q3

REPORT INFORMATION
  Report Type: 
  Country: None (occurrence: None)
  Receive Date: 20120727
  Receipt Date: 20120727
  Transmission Date: 20120928
  Serious: No
  Sender: FDA-Public Use
  Company Number: None

PATIENT
  Age: 57 Year
  Sex: Male
  Weight: 87.9978 kg

DRUGS (2)
  1. HUMIRA [Suspect]
  2. HUMIRA [Suspect]
     Dosage: 40 MG, EVERY OTHER WEEK, SQ

REACTIONS (3)
  - DEVICE MALFUNCTION [None]
  - DEVICE LEAKAGE [None]
  - SWELLING [None]
